FAERS Safety Report 18633282 (Version 1)
Quarter: 2020Q4

REPORT INFORMATION
  Report Type: Report from Study
  Country: JP (occurrence: JP)
  Receive Date: 20201218
  Receipt Date: 20201218
  Transmission Date: 20210114
  Serious: Yes (Death)
  Sender: FDA-Public Use
  Company Number: JP-JNJFOC-20151006942

PATIENT
  Age: 75 Year
  Sex: Male
  Weight: 53 kg

DRUGS (6)
  1. ASPIRIN [ACETYLSALICYLIC ACID] [Suspect]
     Active Substance: ASPIRIN
     Indication: CEREBRAL INFARCTION
     Dosage: 200 MG, QD
     Route: 048
     Dates: start: 20150302, end: 20150303
  2. PLAVIX [Suspect]
     Active Substance: CLOPIDOGREL BISULFATE
     Indication: CEREBRAL INFARCTION
     Dosage: 75 MG, QD
     Route: 048
     Dates: start: 20150302, end: 20150303
  3. EDARAVONE [Concomitant]
     Active Substance: EDARAVONE
     Indication: CEREBRAL INFARCTION
     Dosage: 60 MG, QD
     Dates: start: 20150227, end: 20150303
  4. HEPARIN SODIUM. [Concomitant]
     Active Substance: HEPARIN SODIUM
     Indication: CEREBRAL INFARCTION
     Dosage: 12000 U, QD
     Dates: start: 20150302, end: 20150303
  5. RIVAROXABAN [Suspect]
     Active Substance: RIVAROXABAN
     Indication: ATRIAL FIBRILLATION
     Dosage: 15 MG, UNK
     Route: 048
     Dates: start: 20150228, end: 20150303
  6. RIVAROXABAN [Suspect]
     Active Substance: RIVAROXABAN
     Indication: CEREBROVASCULAR ACCIDENT PROPHYLAXIS
     Route: 048

REACTIONS (4)
  - Haemorrhagic infarction [Fatal]
  - Aphasia [Fatal]
  - Cerebral infarction [Fatal]
  - Brain herniation [Fatal]

NARRATIVE: CASE EVENT DATE: 20150303
